FAERS Safety Report 5740653-9 (Version None)
Quarter: 2008Q2

REPORT INFORMATION
  Report Type: 
  Country: None (occurrence: None)
  Receive Date: 20080516
  Receipt Date: 20080506
  Transmission Date: 20081010
  Serious: Yes (Other)
  Sender: FDA-Public Use
  Company Number: B0520448A

PATIENT
  Age: 65 Year
  Sex: Female

DRUGS (5)
  1. LAMIVUDINE [Suspect]
     Indication: HIV INFECTION
     Route: 065
  2. AZATHIOPRINE [Suspect]
     Indication: HIV INFECTION
     Route: 065
  3. STAVUDINE [Suspect]
     Indication: HIV INFECTION
     Route: 065
  4. EFAVIRENZ [Suspect]
     Indication: HIV INFECTION
     Route: 065
  5. PREDNISONE TAB [Concomitant]
     Dosage: 20MG PER DAY
     Route: 048

REACTIONS (8)
  - AUTOIMMUNE HEPATITIS [None]
  - CD4 LYMPHOCYTES DECREASED [None]
  - DRUG HYPERSENSITIVITY [None]
  - FACIAL WASTING [None]
  - LIPOATROPHY [None]
  - PYREXIA [None]
  - TRANSAMINASES INCREASED [None]
  - WEIGHT DECREASED [None]
